FAERS Safety Report 25897574 (Version 1)
Quarter: 2025Q4

REPORT INFORMATION
  Report Type: Spontaneous
  Country: VN (occurrence: VN)
  Receive Date: 20251008
  Receipt Date: 20251008
  Transmission Date: 20260118
  Serious: Yes (Hospitalization)
  Sender: NOVARTIS
  Company Number: VN-002147023-NVSC2025VN151240

PATIENT
  Age: 35 Year

DRUGS (2)
  1. SECUKINUMAB [Suspect]
     Active Substance: SECUKINUMAB
     Indication: Ankylosing spondylitis
     Dosage: 150 MG
     Route: 065
     Dates: start: 202206, end: 202306
  2. SECUKINUMAB [Suspect]
     Active Substance: SECUKINUMAB
     Dosage: 150 MG
     Route: 065
     Dates: start: 202411

REACTIONS (8)
  - Inflammation [Unknown]
  - Pain [Unknown]
  - Back pain [Unknown]
  - Neck pain [Unknown]
  - Spinal disorder [Unknown]
  - Movement disorder [Unknown]
  - Quality of life decreased [Unknown]
  - Therapeutic product effect decreased [Unknown]
